FAERS Safety Report 5778956-4 (Version None)
Quarter: 2008Q2

REPORT INFORMATION
  Report Type: 
  Country: None (occurrence: None)
  Receive Date: 20080617
  Receipt Date: 20080605
  Transmission Date: 20081010
  Serious: Yes (Death)
  Sender: FDA-Public Use
  Company Number: S08-USA-02017-01

PATIENT
  Age: 63 Year
  Sex: Female

DRUGS (4)
  1. NAMENDA [Suspect]
     Indication: SCHIZOPHRENIA, PARANOID TYPE
     Dosage: 10 MG QD PO
     Route: 048
     Dates: start: 20070101
  2. NAMENDA [Suspect]
     Indication: SCHIZOPHRENIA, PARANOID TYPE
     Dosage: 5 MG QD P0
     Route: 048
  3. NAMENDA [Suspect]
     Indication: SCHIZOPHRENIA, PARANOID TYPE
     Dosage: 5 MG QD PO
     Route: 048
     Dates: start: 20070101, end: 20070101
  4. RISPERDAL [Concomitant]

REACTIONS (3)
  - AGGRESSION [None]
  - DISEASE RECURRENCE [None]
  - PARANOIA [None]
